FAERS Safety Report 17208548 (Version 1)
Quarter: 2019Q4

REPORT INFORMATION
  Report Type: Spontaneous
  Country: US (occurrence: US)
  Receive Date: 20191227
  Receipt Date: 20191227
  Transmission Date: 20200122
  Serious: Yes (Other)
  Sender: FDA-Public Use
  Company Number: US-PFIZER INC-2019554028

PATIENT
  Age: 43 Year
  Sex: Female

DRUGS (2)
  1. DEPO-PROVERA [Suspect]
     Active Substance: MEDROXYPROGESTERONE ACETATE
     Dosage: 150 MG/ML, MONTHLY (EVERY MONTH FOR THE FIRST 3 MONTH)
  2. DEPO-PROVERA [Suspect]
     Active Substance: MEDROXYPROGESTERONE ACETATE
     Indication: CONTRACEPTION
     Dosage: 150 MG/ML, EVERY 3 MONTHS (ONE EVERY THREE MONTHS)

REACTIONS (3)
  - Vaginal haemorrhage [Unknown]
  - Product use issue [Unknown]
  - Off label use [Unknown]
